FAERS Safety Report 5804555-1 (Version None)
Quarter: 2008Q3

REPORT INFORMATION
  Report Type: 
  Country: None (occurrence: None)
  Receive Date: 20080707
  Receipt Date: 20080620
  Transmission Date: 20090109
  Serious: Yes (Death, Hospitalization)
  Sender: FDA-Public Use
  Company Number: 2008BI012906

PATIENT
  Age: 54 Year
  Sex: Female

DRUGS (11)
  1. TYSABRI [Suspect]
     Indication: MULTIPLE SCLEROSIS
     Dosage: 300 MG;QM;IV
     Route: 042
     Dates: start: 20070910, end: 20080303
  2. ZOLOFT [Concomitant]
  3. GABAPENTIN [Concomitant]
  4. PRAVACHOL [Concomitant]
  5. AVALIDE [Concomitant]
  6. ALPRAZOLAM [Concomitant]
  7. AMANTADINE HCL [Concomitant]
  8. TRAMADOL HCL [Concomitant]
  9. KEPPRA [Concomitant]
  10. VOLTAREN [Concomitant]
  11. BACLOFEN [Concomitant]

REACTIONS (16)
  - FACE INJURY [None]
  - FALL [None]
  - HEAD INJURY [None]
  - JOINT INJURY [None]
  - LEUKOCYTOSIS [None]
  - MENTAL STATUS CHANGES [None]
  - PNEUMONIA [None]
  - PNEUMONIA ASPIRATION [None]
  - SEPSIS [None]
  - SKIN LACERATION [None]
  - SOMNOLENCE [None]
  - TACHYCARDIA [None]
  - TRAUMATIC BRAIN INJURY [None]
  - ULCER [None]
  - URINARY TRACT INFECTION [None]
  - VOMITING [None]
